FAERS Safety Report 14379475 (Version 2)
Quarter: 2018Q1

REPORT INFORMATION
  Report Type: Report from Study
  Country: US (occurrence: US)
  Receive Date: 20180112
  Receipt Date: 20180216
  Transmission Date: 20180509
  Serious: Yes (Other)
  Sender: FDA-Public Use
  Company Number: PHEH2018US000948

PATIENT
  Age: 51 Year
  Sex: Female

DRUGS (1)
  1. GILENYA [Suspect]
     Active Substance: FINGOLIMOD HYDROCHLORIDE
     Indication: MULTIPLE SCLEROSIS
     Dosage: 0.5 MG, QD
     Route: 048
     Dates: start: 20170907

REACTIONS (8)
  - Pain [Unknown]
  - Concomitant disease aggravated [Unknown]
  - Blindness transient [Recovered/Resolved]
  - Gaze palsy [Unknown]
  - Dehydration [Recovered/Resolved]
  - Swelling [Unknown]
  - Faeces discoloured [Recovered/Resolved]
  - Headache [Recovered/Resolved]

NARRATIVE: CASE EVENT DATE: 20171005
